FAERS Safety Report 16708794 (Version 1)
Quarter: 2019Q3

REPORT INFORMATION
  Report Type: Spontaneous
  Country: CA (occurrence: CA)
  Receive Date: 20190816
  Receipt Date: 20190816
  Transmission Date: 20191004
  Serious: Yes (Other)
  Sender: FDA-Public Use
  Company Number: CA-JNJFOC-20190808910

PATIENT
  Age: 61 Year
  Sex: Male

DRUGS (8)
  1. PERINDOPRIL [Suspect]
     Active Substance: PERINDOPRIL
     Indication: POST CARDIAC ARREST SYNDROME
     Route: 065
  2. PARACETAMOL [Suspect]
     Active Substance: ACETAMINOPHEN
     Indication: POST CARDIAC ARREST SYNDROME
     Route: 065
  3. METOPROLOL. [Suspect]
     Active Substance: METOPROLOL
     Indication: POST CARDIAC ARREST SYNDROME
     Route: 065
  4. ASA [Suspect]
     Active Substance: ASPIRIN
     Indication: POST CARDIAC ARREST SYNDROME
     Route: 065
  5. TICAGRELOR. [Suspect]
     Active Substance: TICAGRELOR
     Indication: POST CARDIAC ARREST SYNDROME
     Route: 065
  6. PANTOPRAZOLE [Suspect]
     Active Substance: PANTOPRAZOLE
     Indication: POST CARDIAC ARREST SYNDROME
     Route: 065
  7. NITROGLYCERIN. [Suspect]
     Active Substance: NITROGLYCERIN
     Indication: POST CARDIAC ARREST SYNDROME
     Route: 065
  8. HEPARIN [Suspect]
     Active Substance: HEPARIN SODIUM
     Indication: POST CARDIAC ARREST SYNDROME
     Route: 065

REACTIONS (3)
  - Liver injury [Recovering/Resolving]
  - Off label use [Unknown]
  - Product use in unapproved indication [Recovering/Resolving]
